FAERS Safety Report 12530640 (Version 1)
Quarter: 2016Q3

REPORT INFORMATION
  Report Type: Spontaneous
  Country: CN (occurrence: CN)
  Receive Date: 20160706
  Receipt Date: 20160706
  Transmission Date: 20161109
  Serious: Yes (Other)
  Sender: FDA-Public Use
  Company Number: CN-009507513-1412CHN008437

PATIENT
  Age: 52 Year
  Sex: Female
  Weight: 50 kg

DRUGS (23)
  1. EMEND [Suspect]
     Active Substance: APREPITANT
     Indication: PROPHYLAXIS OF NAUSEA AND VOMITING
     Dosage: 125 MG, ONCE, DAY 1
     Route: 048
     Dates: start: 20141025, end: 20141025
  2. DEXAMETHASONE. [Concomitant]
     Active Substance: DEXAMETHASONE
     Indication: PROPHYLAXIS OF NAUSEA AND VOMITING
     Dosage: TOTAL DAILY DOSE 8MG, FREQUENCY: BID
     Route: 048
     Dates: start: 20141025, end: 20141026
  3. DEXTROSE. [Concomitant]
     Active Substance: DEXTROSE
     Indication: CEREBROVASCULAR ACCIDENT PROPHYLAXIS
  4. DEXTROSE. [Concomitant]
     Active Substance: DEXTROSE
     Indication: NUTRITIONAL SUPPLEMENTATION
     Dosage: 250 ML, QD
     Route: 041
     Dates: start: 20141029, end: 20141031
  5. POTASSIUM CHLORIDE. [Concomitant]
     Active Substance: POTASSIUM CHLORIDE
     Indication: INFUSION
     Dosage: 1.5 G, ONCE
     Route: 042
     Dates: start: 20141029, end: 20141029
  6. THYMOPENTIN [Concomitant]
     Active Substance: THYMOPENTIN
     Indication: IMMUNE ENHANCEMENT THERAPY
     Dosage: 10 MG, QD
     Route: 030
     Dates: start: 20141011, end: 20141019
  7. AI DI ZHU SHE YE [Concomitant]
     Indication: DETOXIFICATION
     Dosage: 50 ML/CC, DAILY
     Route: 041
     Dates: start: 20141010, end: 20141019
  8. VITAMIN C [Concomitant]
     Active Substance: ASCORBIC ACID
     Indication: VITAMIN SUPPLEMENTATION
     Dosage: 2 G, QD (STRENGTH 0.5MG/2ML)
     Route: 041
     Dates: start: 20141025, end: 20141027
  9. VITAMINS (UNSPECIFIED) [Concomitant]
     Active Substance: VITAMINS
     Indication: VITAMIN SUPPLEMENTATION
     Dosage: STRENGTH:1 BRANCH, QD
     Route: 041
     Dates: start: 20141025, end: 20141027
  10. DEXTROSE. [Concomitant]
     Active Substance: DEXTROSE
     Indication: CARDIOVASCULAR EVENT PROPHYLAXIS
     Dosage: 200 ML/CC, QD
     Route: 041
     Dates: start: 20141010, end: 20141019
  11. CEFEPIME [Concomitant]
     Active Substance: CEFEPIME HYDROCHLORIDE
     Indication: INFECTION PROPHYLAXIS
     Dosage: 2 G, ONCE
     Route: 058
     Dates: start: 20141029, end: 20141029
  12. CEFEPIME [Concomitant]
     Active Substance: CEFEPIME HYDROCHLORIDE
     Dosage: 2 G, ONCE
     Route: 058
     Dates: start: 20141029, end: 20141029
  13. LANSOPRAZOLE. [Concomitant]
     Active Substance: LANSOPRAZOLE
     Indication: PROPHYLAXIS
     Dosage: 30 MG, QD
     Route: 041
     Dates: start: 20141025, end: 20141027
  14. LEVOCARNITINE. [Concomitant]
     Active Substance: LEVOCARNITINE
     Indication: CARDIOVASCULAR EVENT PROPHYLAXIS
     Dosage: 3G, QD (STRENGTH 1G/5ML)
     Route: 041
     Dates: start: 20141025, end: 20141027
  15. TROPISETRON [Concomitant]
     Active Substance: TROPISETRON
     Dosage: 5 MG, QD (STRENGTH 5MG/1ML)
     Route: 042
     Dates: start: 20141029, end: 20141029
  16. CISPLATIN. [Suspect]
     Active Substance: CISPLATIN
     Indication: CHEMOTHERAPY
     Dosage: 40 MG/D1-D3, TREATMENT CYCLE 1/UNK, TREATMENT REGIMEN: TP
     Route: 041
     Dates: start: 20141025, end: 20141027
  17. REDUCED GLUTATHIONE [Concomitant]
     Indication: PROPHYLAXIS
     Dosage: 1.8 G, QD
     Route: 041
     Dates: start: 20141025, end: 20141027
  18. DOCETAXEL. [Suspect]
     Active Substance: DOCETAXEL
     Indication: CHEMOTHERAPY
     Dosage: 120 MG/DAY 1, TREATMENT CYCLE 1/UNK, TREATMENT REGIMEN: TP
     Route: 041
     Dates: start: 20141025, end: 20141025
  19. VITAMINS (UNSPECIFIED) [Concomitant]
     Active Substance: VITAMINS
     Dosage: STRENGTH:1 BOTTLE, ONCE
     Route: 041
     Dates: start: 20141029, end: 20141029
  20. EMEND [Suspect]
     Active Substance: APREPITANT
     Dosage: 80 MG, FOR DAY 2 AND 3
     Route: 048
     Dates: start: 20141026, end: 20141027
  21. TROPISETRON [Concomitant]
     Active Substance: TROPISETRON
     Indication: PROPHYLAXIS OF NAUSEA AND VOMITING
     Dosage: 5 MG, QD (STRENGTH 5MG/1ML)
     Route: 042
     Dates: start: 20141025, end: 20141027
  22. DEXAMETHASONE. [Concomitant]
     Active Substance: DEXAMETHASONE
     Dosage: 3.75 MG, QD
     Route: 048
     Dates: start: 20141027, end: 20141028
  23. MANNITOL. [Concomitant]
     Active Substance: MANNITOL
     Indication: DIURETIC THERAPY
     Dosage: 50 G, BID (STRENGTH 25G/125ML)
     Route: 041
     Dates: start: 20141025, end: 20141027

REACTIONS (4)
  - Diarrhoea [Recovered/Resolved]
  - Blood potassium decreased [Recovered/Resolved]
  - Blood sodium decreased [Recovered/Resolved]
  - Bone marrow failure [Recovered/Resolved]

NARRATIVE: CASE EVENT DATE: 20141029
